FAERS Safety Report 10007090 (Version 2)
Quarter: 2015Q2

REPORT INFORMATION
  Report Type: Spontaneous
  Country: US (occurrence: None)
  Receive Date: 20140311
  Receipt Date: 20150507
  Transmission Date: 20150821
  Serious: Yes (Disabling)
  Sender: FDA-Public Use
  Company Number: 2226747

PATIENT
  Age: 42 Year
  Sex: Female

DRUGS (4)
  1. HYDROCORTISONE. [Suspect]
     Active Substance: HYDROCORTISONE
     Indication: ACUTE LYMPHOCYTIC LEUKAEMIA
     Route: 037
  2. CYTARABINE. [Suspect]
     Active Substance: CYTARABINE
     Indication: ACUTE LYMPHOCYTIC LEUKAEMIA
     Route: 037
  3. METHOTREXATE [Suspect]
     Active Substance: METHOTREXATE
     Indication: ACUTE LYMPHOCYTIC LEUKAEMIA
     Route: 037
  4. NELARABINE [Suspect]
     Active Substance: NELARABINE
     Indication: ACUTE LYMPHOCYTIC LEUKAEMIA

REACTIONS (8)
  - Balance disorder [None]
  - Abasia [None]
  - Hypoaesthesia [None]
  - Muscular weakness [None]
  - Myelopathy [None]
  - Polyneuropathy [None]
  - Sensory loss [None]
  - Loss of proprioception [None]
